FAERS Safety Report 22273829 (Version 1)
Quarter: 2023Q2

REPORT INFORMATION
  Report Type: Spontaneous
  Country: US (occurrence: US)
  Receive Date: 20230502
  Receipt Date: 20230502
  Transmission Date: 20230721
  Serious: No
  Sender: FDA-Public Use
  Company Number: US-CSLP-25701661508-V13003546-2

PATIENT
  Age: 26 Year
  Sex: Female

DRUGS (4)
  1. ANTICOAGULANT SODIUM CITRATE [Suspect]
     Active Substance: SODIUM CITRATE
     Indication: Anticoagulant therapy
     Route: 050
     Dates: start: 20230418, end: 20230418
  2. BENADRYL [Concomitant]
     Active Substance: DIPHENHYDRAMINE HYDROCHLORIDE
     Indication: Seasonal allergy
  3. NEXPLANON [Concomitant]
     Active Substance: ETONOGESTREL
     Indication: Contraception
  4. NASONEX [Concomitant]
     Active Substance: MOMETASONE FUROATE
     Indication: Seasonal allergy

REACTIONS (5)
  - Pain [Recovered/Resolved]
  - Muscle spasms [Recovered/Resolved]
  - Tetany [Recovered/Resolved]
  - Hypoaesthesia [Recovered/Resolved]
  - Paraesthesia [Recovered/Resolved]

NARRATIVE: CASE EVENT DATE: 20230418
